FAERS Safety Report 7346351-2 (Version None)
Quarter: 2011Q1

REPORT INFORMATION
  Report Type: 
  Country: None (occurrence: None)
  Receive Date: 20110301
  Receipt Date: 20110217
  Transmission Date: 20110831
  Serious: Yes (Hospitalization, Other)
  Sender: FDA-Public Use
  Company Number: 024766

PATIENT
  Sex: Female

DRUGS (1)
  1. XYZAL [Suspect]
     Indication: RHINITIS PERENNIAL
     Dosage: 5 MG QD ORAL
     Route: 048
     Dates: start: 20101208, end: 20101226

REACTIONS (5)
  - PYREXIA [None]
  - ECZEMA [None]
  - MALAISE [None]
  - VIRAL INFECTION [None]
  - LIVER FUNCTION TEST ABNORMAL [None]
